FAERS Safety Report 24108660 (Version 1)
Quarter: 2024Q3

REPORT INFORMATION
  Report Type: Spontaneous
  Country: ES (occurrence: ES)
  Receive Date: 20240718
  Receipt Date: 20240718
  Transmission Date: 20241016
  Serious: Yes (Other)
  Sender: CLINIGEN
  Company Number: ES-CLINIGEN-ES-CLI-2024-010418

PATIENT
  Age: 47 Year
  Sex: Female

DRUGS (3)
  1. DEXRAZOXANE HYDROCHLORIDE [Suspect]
     Active Substance: DEXRAZOXANE HYDROCHLORIDE
     Indication: Endometrial stromal sarcoma
     Dosage: UNK
     Dates: start: 2019, end: 2019
  2. EPIRUBICIN [Suspect]
     Active Substance: EPIRUBICIN
     Indication: Endometrial stromal sarcoma
  3. IFOSFAMIDE [Suspect]
     Active Substance: IFOSFAMIDE
     Indication: Endometrial stromal sarcoma
     Dosage: UNK

REACTIONS (3)
  - Endometrial stromal sarcoma [Unknown]
  - Disease progression [Unknown]
  - Off label use [Unknown]
